FAERS Safety Report 13129838 (Version 1)
Quarter: 2017Q1

REPORT INFORMATION
  Report Type: Spontaneous
  Country: US (occurrence: US)
  Receive Date: 20170118
  Receipt Date: 20170118
  Transmission Date: 20170428
  Serious: Yes (Other)
  Sender: FDA-Public Use
  Company Number: None

PATIENT
  Age: 32 Year
  Sex: Female
  Weight: 56.2 kg

DRUGS (7)
  1. IBUPROFEN. [Concomitant]
     Active Substance: IBUPROFEN
  2. EMETROL [Suspect]
     Active Substance: DEXTROSE\FRUCTOSE\PHOSPHORIC ACID
     Indication: VOMITING
     Dates: start: 20161228, end: 20170118
  3. VIVITROL [Concomitant]
     Active Substance: NALTREXONE
  4. OTC MULTI VITAMIN [Concomitant]
  5. EMETROL [Suspect]
     Active Substance: DEXTROSE\FRUCTOSE\PHOSPHORIC ACID
     Indication: NAUSEA
     Dates: start: 20161228, end: 20170118
  6. EMETROL [Concomitant]
     Active Substance: DEXTROSE\FRUCTOSE\PHOSPHORIC ACID
  7. EMETROL [Suspect]
     Active Substance: DEXTROSE\FRUCTOSE\PHOSPHORIC ACID
     Indication: DIARRHOEA
     Dates: start: 20161228, end: 20170118

REACTIONS (3)
  - Urine alcohol test positive [None]
  - Gastrointestinal disorder [None]
  - Gastric disorder [None]

NARRATIVE: CASE EVENT DATE: 20170111
